FAERS Safety Report 4367684-8 (Version None)
Quarter: 2004Q2

REPORT INFORMATION
  Report Type: 
  Country: None (occurrence: None)
  Receive Date: 20040601
  Receipt Date: 20040518
  Transmission Date: 20050107
  Serious: Yes (Hospitalization)
  Sender: FDA-Public Use
  Company Number: FR-GLAXOSMITHKLINE-B0333746A

PATIENT
  Age: 33 Year
  Sex: Male

DRUGS (4)
  1. ZIAGEN [Suspect]
     Indication: HIV INFECTION
     Dosage: 600MG PER DAY
     Route: 048
     Dates: start: 20040401, end: 20040519
  2. SUSTIVA [Suspect]
     Indication: HIV INFECTION
     Dosage: 600MG PER DAY
     Route: 048
     Dates: start: 20040401, end: 20040501
  3. VIDEX [Suspect]
     Indication: HIV INFECTION
     Dosage: 1TAB PER DAY
     Route: 048
     Dates: start: 20040401, end: 20040519
  4. VIREAD [Suspect]
     Indication: HIV INFECTION
     Dosage: 1TAB PER DAY
     Route: 048
     Dates: start: 20040501, end: 20040519

REACTIONS (6)
  - ASTHENIA [None]
  - HYPERGLYCAEMIA [None]
  - KERATOCONJUNCTIVITIS SICCA [None]
  - NIGHTMARE [None]
  - POLYDIPSIA [None]
  - WEIGHT DECREASED [None]
